FAERS Safety Report 8831834 (Version 2)
Quarter: 2012Q4

REPORT INFORMATION
  Report Type: 
  Country: SE (occurrence: PL)
  Receive Date: 20121008
  Receipt Date: 20121115
  Transmission Date: 20130627
  Serious: Yes (Other)
  Sender: FDA-Public Use
  Company Number: SE-PFIZER INC-2012243361

PATIENT
  Age: 41 Year
  Sex: Female

DRUGS (1)
  1. SALAZOPYRIN [Suspect]
     Indication: RHEUMATOID ARTHRITIS
     Dosage: UNK
     Dates: start: 2005

REACTIONS (2)
  - Functional gastrointestinal disorder [Unknown]
  - Medication residue [Unknown]
